FAERS Safety Report 7598336-9 (Version None)
Quarter: 2011Q3

REPORT INFORMATION
  Report Type: 
  Country: None (occurrence: None)
  Receive Date: 20110708
  Receipt Date: 20110627
  Transmission Date: 20111222
  Serious: Yes (Other)
  Sender: FDA-Public Use
  Company Number: PHHY2011US37251

PATIENT
  Sex: Female
  Weight: 147.65 kg

DRUGS (2)
  1. ZOMETA [Suspect]
     Indication: METASTASES TO BONE
     Dosage: 4 MG, Q3MO
     Route: 042
     Dates: start: 20070717, end: 20110428
  2. ARIMIDEX [Concomitant]
     Indication: BREAST CANCER
     Dates: start: 20070725

REACTIONS (4)
  - OSTEOMYELITIS [None]
  - GINGIVAL INFECTION [None]
  - OSTEONECROSIS OF JAW [None]
  - PAIN [None]
